FAERS Safety Report 10722204 (Version 1)
Quarter: 2015Q1

REPORT INFORMATION
  Report Type: Spontaneous
  Country: CN (occurrence: CN)
  Receive Date: 20150119
  Receipt Date: 20150119
  Transmission Date: 20150721
  Serious: Yes (Other)
  Sender: FDA-Public Use
  Company Number: CN-PFIZER INC-2015014239

PATIENT
  Age: 65 Year
  Sex: Male
  Weight: 38 kg

DRUGS (1)
  1. VFEND [Suspect]
     Active Substance: VORICONAZOLE
     Indication: PULMONARY MYCOSIS
     Dosage: 0.2 G, 2X/DAY
     Route: 048
     Dates: start: 20140705, end: 20140710

REACTIONS (7)
  - Delirium [Recovering/Resolving]
  - Photophobia [Recovering/Resolving]
  - Abnormal dreams [Recovering/Resolving]
  - Parophthalmia [Recovering/Resolving]
  - Visual impairment [Recovering/Resolving]
  - Hallucination [Recovering/Resolving]
  - Altered state of consciousness [Recovering/Resolving]

NARRATIVE: CASE EVENT DATE: 20140705
